FAERS Safety Report 22019036 (Version 3)
Quarter: 2023Q2

REPORT INFORMATION
  Report Type: Spontaneous
  Country: US (occurrence: US)
  Receive Date: 20230222
  Receipt Date: 20230406
  Transmission Date: 20230721
  Serious: Yes (Other)
  Sender: FDA-Public Use
  Company Number: US-MLMSERVICE-20221229-4009377-1

PATIENT
  Age: 67 Year
  Sex: Male

DRUGS (37)
  1. HYDROMORPHONE [Suspect]
     Active Substance: HYDROMORPHONE
     Indication: Cancer pain
     Dosage: 24 MILLIGRAM
     Route: 065
  2. HYDROMORPHONE [Suspect]
     Active Substance: HYDROMORPHONE
     Dosage: 8 MILLIGRAM, 3 TIMES A DAY
     Route: 065
  3. KETAMINE HYDROCHLORIDE [Suspect]
     Active Substance: KETAMINE HYDROCHLORIDE
     Indication: Cancer pain
     Dosage: UNK
     Route: 042
  4. METHADONE [Suspect]
     Active Substance: METHADONE HYDROCHLORIDE
     Indication: Cancer pain
     Dosage: 20 MILLIGRAM, 3 TIMES A DAY
     Route: 065
  5. METHADONE [Suspect]
     Active Substance: METHADONE HYDROCHLORIDE
     Dosage: 20 MILLIGRAM, FOUR TIMES/DAY
     Route: 065
  6. METHADONE [Suspect]
     Active Substance: METHADONE HYDROCHLORIDE
     Dosage: 10 MILLIGRAM, 3 TIMES A DAY
     Route: 065
  7. METHADONE [Suspect]
     Active Substance: METHADONE HYDROCHLORIDE
     Dosage: 5 MILLIGRAM, FOUR TIMES/DAY
     Route: 048
  8. OXYCODONE [Suspect]
     Active Substance: OXYCODONE
     Indication: Cancer pain
     Dosage: 60 MILLIGRAM
     Route: 065
  9. OXYCODONE [Suspect]
     Active Substance: OXYCODONE
     Dosage: 120 MILLIGRAM
     Route: 065
  10. OXYCODONE [Suspect]
     Active Substance: OXYCODONE
     Dosage: 40 MILLIGRAM, FOUR TIMES/DAY
     Route: 065
  11. OXYCODONE [Suspect]
     Active Substance: OXYCODONE
     Dosage: 20 MILLIGRAM, FOUR TIMES/DAY
     Route: 065
  12. OXYCODONE [Suspect]
     Active Substance: OXYCODONE
     Dosage: 5 MILLIGRAM, FOUR TIMES/DAY
     Route: 065
  13. OXYCODONE [Suspect]
     Active Substance: OXYCODONE
     Dosage: 20 MILLIGRAM
  14. OXYCODONE [Suspect]
     Active Substance: OXYCODONE
     Dosage: 15 MILLIGRAM, FOUR TIMES/DAY
     Route: 065
  15. OXYCODONE [Suspect]
     Active Substance: OXYCODONE
     Dosage: 10 MILLIGRAM, FOUR TIMES/DAY
     Route: 065
  16. FENTANYL [Suspect]
     Active Substance: FENTANYL
     Indication: Cancer pain
     Dosage: 100 MICROGRAM/HOUR
     Route: 040
  17. FENTANYL [Suspect]
     Active Substance: FENTANYL
     Dosage: 300 MICROGRAM/HOUR
     Route: 040
  18. FENTANYL [Suspect]
     Active Substance: FENTANYL
     Dosage: 600 MICROGRAM, AS NECESSARY
     Route: 040
  19. FENTANYL [Suspect]
     Active Substance: FENTANYL
     Dosage: 300 MICROGRAM, AS NECESSARY
     Route: 040
  20. MORPHINE [Suspect]
     Active Substance: MORPHINE
     Indication: Cancer pain
     Dosage: 60 MILLIGRAM, 3 TIMES A DAY
     Route: 065
  21. MORPHINE [Suspect]
     Active Substance: MORPHINE
     Dosage: 15 MILLIGRAM, 3 TIMES A DAY
     Route: 065
  22. MORPHINE [Suspect]
     Active Substance: MORPHINE
     Dosage: 30 MILLIGRAM, 3 TIMES A DAY
  23. MORPHINE [Suspect]
     Active Substance: MORPHINE
     Dosage: 90 MILLIGRAM, 3 TIMES A DAY
     Route: 065
  24. IBUPROFEN [Concomitant]
     Active Substance: IBUPROFEN
     Indication: Cancer pain
     Dosage: 400 MILLIGRAM, TWO TIMES A DAY
     Route: 065
  25. ACETAMINOPHEN [Concomitant]
     Active Substance: ACETAMINOPHEN
     Indication: Cancer pain
     Dosage: 1 GRAM, 3 TIMES A DAY
     Route: 065
  26. GABAPENTIN [Concomitant]
     Active Substance: GABAPENTIN
     Indication: Cancer pain
     Dosage: 900 MILLIGRAM, 3 TIMES A DAY
     Route: 065
  27. GABAPENTIN [Concomitant]
     Active Substance: GABAPENTIN
     Dosage: 1200 MILLIGRAM, 3 TIMES A DAY
     Route: 065
  28. GABAPENTIN [Concomitant]
     Active Substance: GABAPENTIN
     Dosage: 3000 MILLIGRAM, ONCE A DAY
     Route: 065
  29. PREDNISONE [Concomitant]
     Active Substance: PREDNISONE
     Indication: Cancer pain
     Dosage: UNK
     Route: 065
  30. DULOXETINE [Concomitant]
     Active Substance: DULOXETINE
     Indication: Cancer pain
     Dosage: 30 MILLIGRAM, ONCE A DAY
     Route: 065
  31. KETOROLAC [Concomitant]
     Active Substance: KETOROLAC TROMETHAMINE
     Indication: Cancer pain
     Dosage: 15 MILLIGRAM, FOUR TIMES/DAY
     Route: 042
  32. METHYLPREDNISOLONE [Concomitant]
     Active Substance: METHYLPREDNISOLONE
     Indication: Cancer pain
     Dosage: 70 MILLIGRAM, DAILY
     Route: 042
  33. LORAZEPAM [Concomitant]
     Active Substance: LORAZEPAM
     Indication: Cancer pain
     Dosage: 1 MILLIGRAM, TWO TIMES A DAY
     Route: 042
  34. LORAZEPAM [Concomitant]
     Active Substance: LORAZEPAM
     Dosage: 1 MILLIGRAM, FOUR TIMES/DAY
     Route: 042
  35. HALOPERIDOL [Concomitant]
     Active Substance: HALOPERIDOL
     Indication: Cancer pain
     Dosage: UNK
     Route: 065
  36. DEXMEDETOMIDINE [Concomitant]
     Active Substance: DEXMEDETOMIDINE
     Indication: Cancer pain
     Dosage: 0.6 MICROGRAM/KILOGRAM
     Route: 042
  37. PROPOFOL [Concomitant]
     Active Substance: PROPOFOL
     Indication: Cancer pain
     Dosage: 50 MICROGRAM/KILOGRAM
     Route: 042

REACTIONS (11)
  - Acute kidney injury [Unknown]
  - Thrombocytopenia [Unknown]
  - Hallucination [Unknown]
  - Bradycardia [Unknown]
  - Confusional state [Unknown]
  - Sedation [Unknown]
  - Tachycardia [Unknown]
  - Hypertension [Unknown]
  - Disorientation [Unknown]
  - Paranoia [Unknown]
  - Drug ineffective [Unknown]
